FAERS Safety Report 5371337-7 (Version None)
Quarter: 2007Q2

REPORT INFORMATION
  Report Type: 
  Country: None (occurrence: None)
  Receive Date: 20070622
  Receipt Date: 20070606
  Transmission Date: 20071010
  Serious: Yes (Life-Threatening, Hospitalization, Other)
  Sender: FDA-Public Use
  Company Number: 156361ISR

PATIENT
  Age: 71 Year
  Sex: Male

DRUGS (2)
  1. SIMVASTATIN [Suspect]
     Dosage: 20 MG (20 MG, 1 IN 1 D) ORAL
     Route: 048
     Dates: start: 20000101, end: 20070423
  2. ROSIGLITAZONE [Suspect]
     Dosage: 8 MG (4 MG, 2 IN 1 D) ORAL
     Route: 048
     Dates: start: 20050411, end: 20070423

REACTIONS (6)
  - ACUTE CORONARY SYNDROME [None]
  - ATRIAL FIBRILLATION [None]
  - INTESTINAL ISCHAEMIA [None]
  - LEFT VENTRICULAR FAILURE [None]
  - PANCREATITIS ACUTE [None]
  - PULMONARY OEDEMA [None]
